FAERS Safety Report 10345664 (Version 2)
Quarter: 2014Q3

REPORT INFORMATION
  Report Type: Spontaneous
  Country: US (occurrence: US)
  Receive Date: 20140728
  Receipt Date: 20140728
  Transmission Date: 20150326
  Serious: Yes (Hospitalization)
  Sender: FDA-Public Use
  Company Number: US-GLAXOSMITHKLINE-A0851901A

PATIENT
  Sex: Male
  Weight: 82.7 kg

DRUGS (1)
  1. AVANDIA [Suspect]
     Active Substance: ROSIGLITAZONE MALEATE
     Indication: DIABETES MELLITUS
     Route: 048
     Dates: start: 20040204, end: 20100714

REACTIONS (4)
  - Myocardial infarction [Unknown]
  - Intracardiac thrombus [Unknown]
  - Coronary artery disease [Unknown]
  - Pulmonary oedema [Unknown]
